FAERS Safety Report 10341573 (Version 1)
Quarter: 2014Q3

REPORT INFORMATION
  Report Type: Spontaneous
  Country: US (occurrence: None)
  Receive Date: 20140724
  Receipt Date: 20140724
  Transmission Date: 20150326
  Serious: Yes (Hospitalization)
  Sender: FDA-Public Use
  Company Number: None

PATIENT
  Age: 56 Year
  Sex: Female
  Weight: 61 kg

DRUGS (4)
  1. CISPLATIN. [Suspect]
     Active Substance: CISPLATIN
  2. NEULASTA [Suspect]
     Active Substance: PEGFILGRASTIM
  3. CARBOPLATIN. [Suspect]
     Active Substance: CARBOPLATIN
  4. TAXOL [Suspect]
     Active Substance: PACLITAXEL

REACTIONS (3)
  - Malaise [None]
  - Dyspnoea exertional [None]
  - Pyrexia [None]

NARRATIVE: CASE EVENT DATE: 20140720
